FAERS Safety Report 20565940 (Version 1)
Quarter: 2022Q1

REPORT INFORMATION
  Report Type: Spontaneous
  Country: US (occurrence: None)
  Receive Date: 20220307
  Receipt Date: 20220307
  Transmission Date: 20220423
  Serious: Yes (Hospitalization)
  Sender: FDA-Public Use
  Company Number: None

PATIENT
  Age: 72 Year
  Sex: Male
  Weight: 77.8 kg

DRUGS (1)
  1. NITROFURANTOIN MONOHYDRATE/MACROCRYSTALS (MONOHYDRATE/MACROCRYSTALS) [Suspect]
     Active Substance: NITROFURANTOIN\NITROFURANTOIN MONOHYDRATE
     Indication: Urinary tract infection
     Dosage: FREQUENCY : DAILY;?
     Route: 048

REACTIONS (4)
  - Suspected COVID-19 [None]
  - Interstitial lung disease [None]
  - Rheumatic disorder [None]
  - COVID-19 pneumonia [None]

NARRATIVE: CASE EVENT DATE: 20220306
